FAERS Safety Report 7634152 (Version 6)
Quarter: 2013Q1

REPORT INFORMATION
  Report Type: Report from Study
  Country: KR (occurrence: KR)
  Receive Date: 20101019
  Receipt Date: 20130329
  Transmission Date: 20140127
  Serious: Yes (Hospitalization)
  Sender: FDA-Public Use
  Company Number: KR-ABBOTT-10P-090-0677494-00

PATIENT
  Age: 21 Year
  Sex: Female
  Weight: 56 kg

DRUGS (6)
  1. KALETRA TABLETS [Suspect]
     Indication: HIV INFECTION
     Dates: start: 20100722, end: 20101008
  2. KALETRA TABLETS [Suspect]
     Dosage: 4 TAB/ONCE A DAY
     Route: 048
     Dates: start: 20101116
  3. COMBIVIR [Suspect]
     Indication: ANTIRETROVIRAL THERAPY
     Dosage: 2 TABLETS DAILY
     Dates: start: 20100722, end: 20101008
  4. ABC [Concomitant]
     Indication: ANTIRETROVIRAL THERAPY
     Dosage: 600 MG/DAY
     Dates: start: 20101116
  5. 3TC [Concomitant]
     Indication: ANTIRETROVIRAL THERAPY
     Dosage: 300 MG/DAY
     Dates: start: 20101116
  6. ADACEL [Concomitant]
     Indication: IMMUNISATION
     Dosage: 0.5 MG
     Route: 030
     Dates: start: 20110526, end: 20110526

REACTIONS (4)
  - Bone marrow failure [Recovering/Resolving]
  - Anaemia [Recovering/Resolving]
  - Neutropenia [Recovered/Resolved]
  - Hypertriglyceridaemia [Not Recovered/Not Resolved]
